FAERS Safety Report 9538317 (Version 1)
Quarter: 2013Q3

REPORT INFORMATION
  Report Type: Spontaneous
  Country: US (occurrence: US)
  Receive Date: 20130920
  Receipt Date: 20130920
  Transmission Date: 20140515
  Serious: Yes (Death, Hospitalization)
  Sender: FDA-Public Use
  Company Number: US-CELGENEUS-163-POMAL-13091630

PATIENT
  Age: 60 Year
  Sex: Female
  Weight: 62.5 kg

DRUGS (2)
  1. POMALYST [Suspect]
     Indication: PLASMA CELL MYELOMA
     Dosage: 2 MILLIGRAM
     Route: 048
     Dates: start: 20130628
  2. POMALYST [Suspect]
     Dosage: 2 MILLIGRAM
     Route: 048
     Dates: start: 20130802

REACTIONS (4)
  - Plasma cell myeloma [Fatal]
  - Mental status changes [Unknown]
  - Dyspnoea [Unknown]
  - Renal failure [Unknown]
